FAERS Safety Report 6196668-2 (Version None)
Quarter: 2009Q2

REPORT INFORMATION
  Report Type: 
  Country: None (occurrence: None)
  Receive Date: 20090520
  Receipt Date: 20090514
  Transmission Date: 20091009
  Serious: Yes (Hospitalization)
  Sender: FDA-Public Use
  Company Number: B0573970A

PATIENT
  Sex: Female

DRUGS (10)
  1. ARIXTRA [Suspect]
     Indication: PULMONARY EMBOLISM
     Dosage: 10MG PER DAY
     Route: 058
     Dates: start: 20090415, end: 20090419
  2. PREVISCAN [Suspect]
     Indication: ATRIAL FLUTTER
     Dosage: 20MG PER DAY
     Route: 048
     Dates: end: 20090420
  3. KARDEGIC [Suspect]
     Route: 048
     Dates: end: 20090420
  4. CARDENSIEL [Concomitant]
     Dosage: 1.25MG PER DAY
     Route: 048
     Dates: start: 20070101, end: 20090420
  5. CORDARONE [Concomitant]
     Indication: ATRIAL FLUTTER
     Dosage: 400MG PER DAY
     Route: 048
     Dates: start: 20090101
  6. MONOTILDIEM LP [Concomitant]
     Indication: ATRIAL FLUTTER
     Dosage: 300MG PER DAY
     Route: 048
     Dates: start: 20090101, end: 20090420
  7. EFFEXOR [Concomitant]
     Dosage: 37.5MG PER DAY
     Route: 048
     Dates: start: 20070101
  8. ZOLPIDEM TARTRATE [Concomitant]
     Indication: INSOMNIA
     Dosage: 10MG PER DAY
     Route: 048
     Dates: start: 20070101
  9. DIFFU K [Concomitant]
     Dosage: 1CAP THREE TIMES PER DAY
     Route: 048
  10. ACETAMINOPHEN [Concomitant]
     Indication: ARTHRALGIA
     Dosage: 1UNIT FOUR TIMES PER DAY
     Route: 048

REACTIONS (9)
  - ACCIDENTAL OVERDOSE [None]
  - ANAEMIA [None]
  - BLOOD CREATININE INCREASED [None]
  - DRUG INTERACTION [None]
  - HYPOTENSION [None]
  - INTERNATIONAL NORMALISED RATIO INCREASED [None]
  - MUSCLE HAEMORRHAGE [None]
  - OLIGURIA [None]
  - PALLOR [None]
